FAERS Safety Report 8702235 (Version 2)
Quarter: 2013Q4

REPORT INFORMATION
  Report Type: Spontaneous
  Country: GB (occurrence: GB)
  Receive Date: 20120803
  Receipt Date: 20131031
  Transmission Date: 20140711
  Serious: Yes (Hospitalization, Other)
  Sender: FDA-Public Use
  Company Number: GB-009507513-87030522

PATIENT
  Age: 32 Year
  Sex: Male

DRUGS (2)
  1. ELAVIL [Suspect]
     Indication: OVERDOSE
     Dosage: 2125 MG, UNK
     Route: 048
  2. CHLORPROMAZINE [Concomitant]
     Indication: OVERDOSE
     Dosage: 2500 MG, UNK
     Route: 048

REACTIONS (3)
  - Faecaloma [Recovered/Resolved]
  - Overdose [Recovered/Resolved]
  - Suicide attempt [Unknown]
